FAERS Safety Report 14940572 (Version 12)
Quarter: 2018Q4

REPORT INFORMATION
  Report Type: Report from Study
  Country: CA (occurrence: CA)
  Receive Date: 20180525
  Receipt Date: 20181211
  Transmission Date: 20190204
  Serious: Yes (Hospitalization, Other)
  Sender: FDA-Public Use
  Company Number: CA-BRISTOL-MYERS SQUIBB COMPANY-BMS-2017-076975

PATIENT
  Age: 79 Year
  Sex: Female

DRUGS (5)
  1. LEUCOVORIN                         /00566701/ [Concomitant]
     Active Substance: LEUCOVORIN
     Indication: PRODUCT USED FOR UNKNOWN INDICATION
     Dosage: UNK
     Route: 065
  2. ATORVASTATIN [Concomitant]
     Active Substance: ATORVASTATIN
     Indication: PRODUCT USED FOR UNKNOWN INDICATION
     Dosage: UNK
     Route: 065
  3. AMLODIPINE [Concomitant]
     Active Substance: AMLODIPINE BESYLATE
     Indication: PRODUCT USED FOR UNKNOWN INDICATION
     Dosage: UNK
     Route: 065
  4. ABATACEPT [Suspect]
     Active Substance: ABATACEPT
     Indication: PRODUCT USED FOR UNKNOWN INDICATION
     Dosage: 750 MG, UNK
     Route: 042
  5. ABATACEPT [Suspect]
     Active Substance: ABATACEPT
     Indication: RHEUMATOID ARTHRITIS
     Dosage: 750 MG, QMO
     Route: 042
     Dates: start: 20161125, end: 20170817

REACTIONS (16)
  - Localised infection [Recovering/Resolving]
  - Oral infection [Recovering/Resolving]
  - Knee operation [Recovering/Resolving]
  - Kidney infection [Unknown]
  - Procedural pain [Unknown]
  - Abdominal pain lower [Recovering/Resolving]
  - Treatment failure [Not Recovered/Not Resolved]
  - Urinary tract infection [Unknown]
  - Swelling [Unknown]
  - Joint injury [Recovered/Resolved]
  - Heart rate irregular [Recovered/Resolved]
  - Erythema [Unknown]
  - Thermal burn [Unknown]
  - Constipation [Unknown]
  - Blister [Unknown]
  - Influenza like illness [Recovering/Resolving]

NARRATIVE: CASE EVENT DATE: 20180802
